FAERS Safety Report 6775065-2 (Version None)
Quarter: 2010Q2

REPORT INFORMATION
  Report Type: 
  Country: None (occurrence: None)
  Receive Date: 20100617
  Receipt Date: 20100610
  Transmission Date: 20101027
  Serious: Yes (Other)
  Sender: FDA-Public Use
  Company Number: B0652785A

PATIENT
  Sex: Female

DRUGS (6)
  1. PAXIL [Suspect]
     Indication: DEPRESSION
     Dosage: 10MG PER DAY
     Route: 048
     Dates: start: 20070305
  2. CHINESE MEDICINE [Concomitant]
     Route: 048
  3. DEPAS [Concomitant]
     Indication: PANIC DISORDER
     Dosage: 1.5MG PER DAY
     Route: 048
     Dates: start: 20081225
  4. SEDIEL [Concomitant]
     Dosage: 10MG PER DAY
     Route: 048
     Dates: start: 20070305
  5. DIENOGEST [Concomitant]
     Dates: start: 20100201
  6. IBUPROFEN [Concomitant]

REACTIONS (7)
  - AGGRESSION [None]
  - ANXIETY [None]
  - DEPRESSION [None]
  - ENDOMETRIOSIS [None]
  - HEADACHE [None]
  - SOMNAMBULISM [None]
  - TREMOR [None]
